FAERS Safety Report 24210452 (Version 2)
Quarter: 2025Q2

REPORT INFORMATION
  Report Type: Report from Study
  Country: US (occurrence: US)
  Receive Date: 20240814
  Receipt Date: 20250531
  Transmission Date: 20250717
  Serious: Yes (Death)
  Sender: STEMLINE THERAPEUTICS
  Company Number: US-STEMLINE THERAPEUTICS, INC-2024-STML-US000083

PATIENT

DRUGS (1)
  1. ORSERDU [Suspect]
     Active Substance: ELACESTRANT
     Indication: Product used for unknown indication
     Dosage: 345 MG, DAILY
     Route: 048
     Dates: start: 20240423

REACTIONS (1)
  - Death [Fatal]
